FAERS Safety Report 5409893-2 (Version None)
Quarter: 2007Q3

REPORT INFORMATION
  Report Type: 
  Country: None (occurrence: None)
  Receive Date: 20070809
  Receipt Date: 20070419
  Transmission Date: 20080115
  Serious: Yes (Hospitalization, Other)
  Sender: FDA-Public Use
  Company Number: US-PFIZER INC-2007057876

PATIENT
  Sex: Female
  Weight: 63.5 kg

DRUGS (3)
  1. CELEBREX [Suspect]
     Indication: BACK INJURY
     Route: 048
     Dates: start: 19970601, end: 20000601
  2. CELEBREX [Suspect]
     Indication: PAIN MANAGEMENT
     Dates: start: 20000601, end: 20020301
  3. CELEBREX [Suspect]
     Indication: ARTHRITIS

REACTIONS (2)
  - MYOCARDIAL INFARCTION [None]
  - TRANSIENT ISCHAEMIC ATTACK [None]
